FAERS Safety Report 12622525 (Version 1)
Quarter: 2016Q3

REPORT INFORMATION
  Report Type: Spontaneous
  Country: BR (occurrence: BR)
  Receive Date: 20160804
  Receipt Date: 20160804
  Transmission Date: 20161109
  Serious: Yes (Other)
  Sender: FDA-Public Use
  Company Number: BR-009507513-1608BRA001129

PATIENT
  Age: 58 Year
  Sex: Female
  Weight: 84 kg

DRUGS (1)
  1. DESALEX [Suspect]
     Active Substance: DESLORATADINE
     Dosage: UNK
     Route: 048

REACTIONS (3)
  - Diabetes mellitus [Not Recovered/Not Resolved]
  - Breast cancer [Unknown]
  - Hypertension [Not Recovered/Not Resolved]

NARRATIVE: CASE EVENT DATE: 1996
